FAERS Safety Report 24980608 (Version 1)
Quarter: 2025Q1

REPORT INFORMATION
  Report Type: Spontaneous
  Country: US (occurrence: None)
  Receive Date: 20250214
  Receipt Date: 20250214
  Transmission Date: 20250409
  Serious: Yes (Hospitalization)
  Sender: FDA-CTU
  Company Number: None

PATIENT
  Age: 0 Year
  Sex: Male
  Weight: 3.05 kg

DRUGS (2)
  1. CITALOPRAM [Suspect]
     Active Substance: CITALOPRAM
     Dates: start: 20210326
  2. ONDANSETRON [Suspect]
     Active Substance: ONDANSETRON
     Dates: start: 20210329

REACTIONS (3)
  - Hypopnoea [None]
  - Neonatal dyspnoea [None]
  - Heart rate decreased [None]

NARRATIVE: CASE EVENT DATE: 20211204
